FAERS Safety Report 4590694-2 (Version None)
Quarter: 2005Q1

REPORT INFORMATION
  Report Type: 
  Country: None (occurrence: None)
  Receive Date: 20050224
  Receipt Date: 20050215
  Transmission Date: 20050727
  Serious: Yes (Congenital Anomaly, Other)
  Sender: FDA-Public Use
  Company Number: FR-MERCK-0502USA02104B1

PATIENT
  Sex: Male
  Weight: 3 kg

DRUGS (5)
  1. HYDROCHLOROTHIAZIDE [Suspect]
  2. VALSARTAN [Suspect]
  3. LEVOTHYROXINE SODIUM [Concomitant]
  4. PRAZOSIN [Concomitant]
  5. ASPIRIN LYSINE [Concomitant]
     Indication: PROPHYLAXIS

REACTIONS (9)
  - BONE DISORDER [None]
  - CAESAREAN SECTION [None]
  - CRANIAL SUTURES WIDENING [None]
  - FOETAL DISORDER [None]
  - FOETAL HEART RATE DECELERATION [None]
  - MATERNAL DRUGS AFFECTING FOETUS [None]
  - OLIGOHYDRAMNIOS [None]
  - RENAL FAILURE [None]
  - TALIPES [None]
